FAERS Safety Report 7351470-0 (Version None)
Quarter: 2011Q1

REPORT INFORMATION
  Report Type: 
  Country: None (occurrence: None)
  Receive Date: 20110314
  Receipt Date: 20110215
  Transmission Date: 20110831
  Serious: No
  Sender: FDA-Public Use
  Company Number: US-B.I. PHARMACEUTICALS,INC./RIDGEFIELD-2011-BP-05479BP

PATIENT
  Age: 79 Year
  Sex: Female

DRUGS (9)
  1. PRADAXA [Suspect]
  2. TOPROL-XL [Concomitant]
  3. CRESTOR [Concomitant]
  4. FELODIPINE [Concomitant]
  5. GLUCOTROL [Concomitant]
  6. DIGOXIN [Concomitant]
  7. MICARDIS [Concomitant]
  8. HYDRALAZINE [Concomitant]
  9. ACTOS [Concomitant]

REACTIONS (2)
  - PRURITUS [None]
  - FLATULENCE [None]
